FAERS Safety Report 4695449-6 (Version None)
Quarter: 2005Q2

REPORT INFORMATION
  Report Type: 
  Country: None (occurrence: None)
  Receive Date: 20050617
  Receipt Date: 20050617
  Transmission Date: 20051028
  Serious: Yes (Other)
  Sender: FDA-Public Use
  Company Number: None

PATIENT
  Age: 72 Year
  Sex: Male
  Weight: 114.3 kg

DRUGS (13)
  1. CLOPIDOGREL [Suspect]
  2. SIMVASTATIN [Concomitant]
  3. LORATADINE [Concomitant]
  4. ROSIGLITAZONE MALEATE [Concomitant]
  5. PIROXICAM [Concomitant]
  6. ALBUTEROL /IPRATROP [Concomitant]
  7. OMEPRAZOLE [Concomitant]
  8. FLUNISOLINE NASAL SPRAY [Concomitant]
  9. GLYBURIDE [Concomitant]
  10. RAMIPRIL [Concomitant]
  11. ZOLPIDEM TARTRATE [Concomitant]
  12. CLOPIDOGREL BISULFATE [Concomitant]
  13. FORMETEROL FUMARATE [Concomitant]

REACTIONS (1)
  - ECCHYMOSIS [None]
